FAERS Safety Report 19750133 (Version 1)
Quarter: 2021Q3

REPORT INFORMATION
  Report Type: Spontaneous
  Country: US (occurrence: US)
  Receive Date: 20210824
  Receipt Date: 20210824
  Transmission Date: 20211014
  Serious: No
  Sender: FDA-Public Use
  Company Number: None

PATIENT

DRUGS (2)
  1. DOPAMINE HCL 400MG [Suspect]
     Active Substance: DOPAMINE HYDROCHLORIDE
  2. DOPAMINE HCL 800MG [Suspect]
     Active Substance: DOPAMINE HYDROCHLORIDE

REACTIONS (2)
  - Wrong product stored [None]
  - Product dispensing error [None]
